FAERS Safety Report 6642622-3 (Version None)
Quarter: 2010Q1

REPORT INFORMATION
  Report Type: 
  Country: None (occurrence: None)
  Receive Date: 20100319
  Receipt Date: 20100310
  Transmission Date: 20100710
  Serious: Yes (Disabling)
  Sender: FDA-Public Use
  Company Number: US-MERCK-1002USA03467

PATIENT
  Age: 27 Year
  Sex: Male

DRUGS (3)
  1. ISENTRESS [Suspect]
     Indication: HIV INFECTION
     Route: 048
     Dates: start: 20100216
  2. TRUVADA [Concomitant]
     Route: 065
  3. BACTRIM [Concomitant]
     Route: 065

REACTIONS (3)
  - ADVERSE EVENT [None]
  - DIZZINESS [None]
  - NASOPHARYNGITIS [None]
